FAERS Safety Report 9670792 (Version 2)
Quarter: 2014Q2

REPORT INFORMATION
  Report Type: Spontaneous
  Country: US (occurrence: US)
  Receive Date: 20131106
  Receipt Date: 20140421
  Transmission Date: 20141212
  Serious: Yes (Hospitalization, Disabling)
  Sender: FDA-Public Use
  Company Number: US-BAYER-2013-131924

PATIENT
  Age: 49 Year
  Sex: Female
  Weight: 54.42 kg

DRUGS (6)
  1. YASMIN [Suspect]
     Indication: VAGINAL HAEMORRHAGE
     Dosage: UNK
     Dates: start: 20030527, end: 20120302
  2. OCELLA [Suspect]
     Indication: VAGINAL HAEMORRHAGE
     Dosage: UNK
     Dates: start: 20030527, end: 20120302
  3. AMOXICILLIN [Concomitant]
  4. KEPPRA [Concomitant]
     Indication: CONVULSION PROPHYLAXIS
  5. DECADRON [Concomitant]
     Indication: HAEMORRHAGE INTRACRANIAL
  6. NORCO [Concomitant]

REACTIONS (10)
  - Haemorrhagic stroke [Recovering/Resolving]
  - Transverse sinus thrombosis [Recovering/Resolving]
  - Cerebral venous thrombosis [Recovering/Resolving]
  - Injury [Recovering/Resolving]
  - Pain [Recovering/Resolving]
  - Anxiety [None]
  - Anhedonia [None]
  - Pain [None]
  - Mental disorder [None]
  - Off label use [None]
